FAERS Safety Report 9375662 (Version 1)
Quarter: 2013Q2

REPORT INFORMATION
  Report Type: Spontaneous
  Country: US (occurrence: US)
  Receive Date: 20130628
  Receipt Date: 20130628
  Transmission Date: 20140414
  Serious: Yes (Other)
  Sender: FDA-Public Use
  Company Number: US-MYLANLABS-2013S1013728

PATIENT
  Age: 66 Year
  Sex: Female
  Weight: 45.81 kg

DRUGS (1)
  1. AMLODIPINE BESYLATE TABLETS [Suspect]
     Indication: HYPERTENSION
     Route: 048
     Dates: start: 20130522, end: 20130525

REACTIONS (2)
  - Anaphylactic reaction [Recovered/Resolved]
  - Weight increased [Recovered/Resolved]
